FAERS Safety Report 17577003 (Version 1)
Quarter: 2020Q1

REPORT INFORMATION
  Report Type: Spontaneous
  Country: US (occurrence: US)
  Receive Date: 20200319
  Receipt Date: 20200319
  Transmission Date: 20200409
  Serious: Yes (Hospitalization)
  Sender: FDA-Public Use
  Company Number: None

PATIENT
  Age: 74 Year
  Sex: Male
  Weight: 117.93 kg

DRUGS (1)
  1. APIXABAN (APIXABAN 5MG TAB) [Suspect]
     Active Substance: APIXABAN
     Indication: ATRIAL FIBRILLATION
     Route: 048
     Dates: start: 20190122, end: 20200211

REACTIONS (4)
  - Blindness [None]
  - Cerebrovascular accident [None]
  - Therapy cessation [None]
  - Transient ischaemic attack [None]

NARRATIVE: CASE EVENT DATE: 20200211
